FAERS Safety Report 5120234-0 (Version None)
Quarter: 2006Q4

REPORT INFORMATION
  Report Type: 
  Country: None (occurrence: None)
  Receive Date: 20061004
  Receipt Date: 20060913
  Transmission Date: 20070319
  Serious: Yes (Other)
  Sender: FDA-Public Use
  Company Number: FRWYE912013SEP06

PATIENT
  Age: 30 Year
  Sex: Male

DRUGS (1)
  1. ENBREL [Suspect]
     Indication: PSORIATIC ARTHROPATHY
     Dosage: UNKNOWN
     Route: 058
     Dates: start: 20050501

REACTIONS (6)
  - CONDITION AGGRAVATED [None]
  - DISEASE RECURRENCE [None]
  - HEADACHE [None]
  - HYPOACUSIS [None]
  - PSORIASIS [None]
  - TINNITUS [None]
